FAERS Safety Report 21515944 (Version 2)
Quarter: 2022Q4

REPORT INFORMATION
  Report Type: Report from Study
  Country: IT (occurrence: IT)
  Receive Date: 20221027
  Receipt Date: 20221118
  Transmission Date: 20230112
  Serious: Yes (Hospitalization, Other)
  Sender: FDA-Public Use
  Company Number: IT-NOVARTISPH-NVSC2022IT239408

PATIENT
  Age: 22 Year
  Sex: Male

DRUGS (2)
  1. ADAKVEO [Suspect]
     Active Substance: CRIZANLIZUMAB-TMCA
     Indication: Product used for unknown indication
     Dosage: 250 MG, QMO (EXCLUDING THE FIRST TWO DOSES)
     Route: 065
     Dates: start: 20210826
  2. ADAKVEO [Suspect]
     Active Substance: CRIZANLIZUMAB-TMCA
     Dosage: 250 MG, QMO
     Route: 065

REACTIONS (1)
  - Acute chest syndrome [Recovered/Resolved]

NARRATIVE: CASE EVENT DATE: 20210917
